FAERS Safety Report 4887982-9 (Version None)
Quarter: 2006Q1

REPORT INFORMATION
  Report Type: 
  Country: None (occurrence: None)
  Receive Date: 20060123
  Receipt Date: 20050511
  Transmission Date: 20060701
  Serious: Yes (Death, Hospitalization, Disabling, Other)
  Sender: FDA-Public Use
  Company Number: US-MERCK-0505USA01514

PATIENT
  Age: 80 Year
  Sex: Female

DRUGS (1)
  1. VIOXX [Suspect]
     Route: 048

REACTIONS (25)
  - ABDOMINAL TENDERNESS [None]
  - ADVERSE EVENT [None]
  - ANAEMIA [None]
  - BLOOD CHOLESTEROL INCREASED [None]
  - CARDIAC ARREST [None]
  - CARDIAC DISORDER [None]
  - CATARACT [None]
  - CEREBROVASCULAR ACCIDENT [None]
  - CHEST PAIN [None]
  - DEATH [None]
  - GASTROOESOPHAGEAL REFLUX DISEASE [None]
  - HYPERTENSION [None]
  - HYPERTHYROIDISM [None]
  - HYPOGLYCAEMIA [None]
  - LIPIDS INCREASED [None]
  - MENTAL STATUS CHANGES [None]
  - MULTI-ORGAN DISORDER [None]
  - NAUSEA [None]
  - PAIN [None]
  - PALPITATIONS [None]
  - POLYTRAUMATISM [None]
  - THYROIDITIS SUBACUTE [None]
  - TRANSIENT ISCHAEMIC ATTACK [None]
  - URINARY TRACT INFECTION [None]
  - VOMITING [None]
